FAERS Safety Report 10079182 (Version 1)
Quarter: 2014Q2

REPORT INFORMATION
  Report Type: Spontaneous
  Country: US (occurrence: US)
  Receive Date: 20140415
  Receipt Date: 20140415
  Transmission Date: 20141212
  Serious: Yes (Other)
  Sender: FDA-Public Use
  Company Number: US-ELI_LILLY_AND_COMPANY-US201404001852

PATIENT
  Age: 44 Year
  Sex: Male

DRUGS (16)
  1. CYMBALTA [Suspect]
     Indication: DEPRESSION
     Dosage: 30MG, BID
     Route: 065
     Dates: start: 2006
  2. CYMBALTA [Suspect]
     Indication: ARTHRALGIA
  3. TENACID [Concomitant]
  4. LYRICA [Concomitant]
  5. CIPRO [Concomitant]
     Dosage: UNK, DAILY
  6. MOBIC [Concomitant]
  7. ARTROTEC [Concomitant]
  8. VOLTARENE [Concomitant]
     Route: 062
  9. ATARAX [Concomitant]
  10. AUGMENTIN [Concomitant]
  11. SINEMET [Concomitant]
  12. ELAVIL [Concomitant]
     Dosage: 100MG, UNK
  13. XANAX [Concomitant]
     Dosage: 2MG, UNK
  14. BACLOFEN [Concomitant]
     Dosage: 10MG, UNK
  15. METHADONE [Concomitant]
     Dosage: 10MG, UNK
  16. PHENERGAN [Concomitant]

REACTIONS (14)
  - Nephrolithiasis [Unknown]
  - Polyp [Unknown]
  - Arthropathy [Not Recovered/Not Resolved]
  - Rotator cuff syndrome [Unknown]
  - Bursitis [Not Recovered/Not Resolved]
  - Arthritis [Not Recovered/Not Resolved]
  - Bone disorder [Unknown]
  - Musculoskeletal pain [Unknown]
  - Dyskinesia [Unknown]
  - Peripheral swelling [Unknown]
  - White blood cell count increased [Unknown]
  - Joint swelling [Unknown]
  - Dysphonia [Unknown]
  - Arthralgia [Unknown]
